FAERS Safety Report 18755578 (Version 2)
Quarter: 2021Q1

REPORT INFORMATION
  Report Type: Report from Study
  Country: AU (occurrence: AU)
  Receive Date: 20210119
  Receipt Date: 20210127
  Transmission Date: 20210419
  Serious: Yes (Hospitalization)
  Sender: FDA-Public Use
  Company Number: AU-GLAXOSMITHKLINE-AU2021GSK011266

PATIENT
  Age: 80 Year
  Sex: Female

DRUGS (25)
  1. PIPERACILLIN AND TAZOBACTAM [Concomitant]
     Active Substance: PIPERACILLIN SODIUM\TAZOBACTAM SODIUM
     Indication: CYTOKINE RELEASE SYNDROME
     Dosage: 4.5 G, QD
     Route: 042
     Dates: start: 20201203, end: 20201206
  2. MAXOLON [Concomitant]
     Active Substance: METOCLOPRAMIDE HYDROCHLORIDE
     Indication: PROPHYLAXIS
     Dosage: 10 MG, SINGLE (ONCE)
     Route: 048
     Dates: start: 20201203
  3. ASPIRIN. [Concomitant]
     Active Substance: ASPIRIN
     Indication: PROPHYLAXIS
     Dosage: 100 MG, SINGLE
     Route: 048
     Dates: start: 20201210, end: 20201210
  4. HYALURONATE SODIUM [Concomitant]
     Active Substance: HYALURONATE SODIUM
     Indication: PROPHYLAXIS
     Dosage: 1 DROP, QID
     Route: 047
     Dates: start: 20201203
  5. COVERSYL [Concomitant]
     Active Substance: PERINDOPRIL
     Indication: HYPERTENSION
     Dosage: 5 MG, QD
     Route: 048
     Dates: start: 201112
  6. PARACETAMOL [Concomitant]
     Active Substance: ACETAMINOPHEN
     Indication: ARTHRALGIA
     Dosage: 1 G, PRN
     Route: 048
     Dates: start: 20201119
  7. OXYCODONE [Concomitant]
     Active Substance: OXYCODONE
     Dosage: 5 MG, PRN
     Route: 048
     Dates: start: 20201203, end: 20201206
  8. HYDROCORTISONE. [Concomitant]
     Active Substance: HYDROCORTISONE
     Indication: CYTOKINE RELEASE SYNDROME
     Dosage: 100 MG, SINGLE (ONCE)
     Route: 042
     Dates: start: 20201203
  9. VANCOMYCIN [Concomitant]
     Active Substance: VANCOMYCIN
     Dosage: 500 MG, BID
     Route: 042
     Dates: start: 20201215, end: 20201216
  10. FEXOFENADINE [Concomitant]
     Active Substance: FEXOFENADINE HYDROCHLORIDE
     Indication: SEASONAL ALLERGY
     Dosage: 180 MG, PRN
     Route: 048
     Dates: start: 2020
  11. PIPERACILLIN AND TAZOBACTAM [Concomitant]
     Active Substance: PIPERACILLIN SODIUM\TAZOBACTAM SODIUM
     Dosage: 4.5 G, TID
     Route: 042
     Dates: start: 20201214, end: 20201216
  12. ONDANSETRON [Concomitant]
     Active Substance: ONDANSETRON
     Dosage: 4 MG, SINGLE (ONCE)
     Route: 048
     Dates: start: 20201208, end: 20201208
  13. MAGNESIUM [Concomitant]
     Active Substance: MAGNESIUM
     Dosage: 10 ML, SINGLE (ONCE)
     Route: 042
     Dates: start: 20201209, end: 20201209
  14. NILSTAT [Concomitant]
     Active Substance: NYSTATIN
     Indication: ORAL CANDIDIASIS
     Dosage: 1 ML, QID
     Route: 048
     Dates: start: 20201208, end: 20201210
  15. ONDANSETRON [Concomitant]
     Active Substance: ONDANSETRON
     Dosage: 8 MG, SINGLE (ONCE)
     Route: 042
     Dates: start: 20201203, end: 20201203
  16. PHOSPHATE [Concomitant]
     Active Substance: UNSPECIFIED INGREDIENT
     Indication: HYPOPHOSPHATAEMIA
     Dosage: 1000 MG, SINGLE
     Route: 048
     Dates: start: 20201206, end: 20201206
  17. VANCOMYCIN [Concomitant]
     Active Substance: VANCOMYCIN
     Indication: PYREXIA
     Dosage: 1.75 G, SINGLE
     Route: 042
     Dates: start: 20201214, end: 20201214
  18. LORATADINE. [Concomitant]
     Active Substance: LORATADINE
     Indication: PROPHYLAXIS
     Dosage: 10 MG, SINGLE (ONCE)
     Route: 048
     Dates: start: 20201203
  19. CLEXANE [Concomitant]
     Active Substance: ENOXAPARIN SODIUM
     Indication: PROPHYLAXIS
     Dosage: 40 MG, QD
     Route: 058
     Dates: start: 20201209, end: 20201209
  20. MAGNESIUM [Concomitant]
     Active Substance: MAGNESIUM
     Indication: PROPHYLAXIS
     Dosage: 2 DF, SINGLE (ONCE)
     Route: 048
     Dates: start: 20201206, end: 20201206
  21. FILGRASTIM [Concomitant]
     Active Substance: FILGRASTIM
     Indication: NEUTROPENIA
     Dosage: 300 UMOL, 1 TIME PER WEEK
     Route: 058
     Dates: start: 20210107
  22. ASPIRIN. [Concomitant]
     Active Substance: ASPIRIN
     Dosage: 300 MG, SINGLE
     Route: 048
     Dates: start: 20201209, end: 20201209
  23. VALACICLOVIR [Concomitant]
     Active Substance: VALACYCLOVIR HYDROCHLORIDE
     Dosage: 500 MG, QD
     Route: 048
     Dates: start: 2020
  24. BELANTAMAB MAFODOTIN. [Suspect]
     Active Substance: BELANTAMAB MAFODOTIN
     Indication: PLASMA CELL MYELOMA
     Dosage: UNK
  25. BACTRIM [Concomitant]
     Active Substance: SULFAMETHOXAZOLE\TRIMETHOPRIM
     Indication: PROPHYLAXIS
     Dosage: 1 DF, 2 TIMES PER WEEK
     Route: 048
     Dates: start: 2015

REACTIONS (1)
  - Confusional state [Recovered/Resolved]

NARRATIVE: CASE EVENT DATE: 20210116
